FAERS Safety Report 5450202-0 (Version None)
Quarter: 2007Q3

REPORT INFORMATION
  Report Type: 
  Country: None (occurrence: None)
  Receive Date: 20070912
  Receipt Date: 20070905
  Transmission Date: 20080115
  Serious: Yes (Other)
  Sender: FDA-Public Use
  Company Number: GB-PFIZER INC-2007074673

PATIENT

DRUGS (1)
  1. DEPO-PROVERA SUSPENSION/INJ [Suspect]
     Route: 030

REACTIONS (1)
  - LUNG NEOPLASM MALIGNANT [None]
